FAERS Safety Report 9787867 (Version 2)
Quarter: 2014Q1

REPORT INFORMATION
  Report Type: Spontaneous
  Country: US (occurrence: US)
  Receive Date: 20131230
  Receipt Date: 20140222
  Transmission Date: 20141002
  Serious: No
  Sender: FDA-Public Use
  Company Number: US-009507513-1312USA012077

PATIENT
  Sex: 0

DRUGS (2)
  1. ASMANEX TWISTHALER [Suspect]
     Dosage: ONE DOSE AT NIGHT TIME, HS 110
     Route: 055
     Dates: start: 2010
  2. ASMANEX TWISTHALER [Suspect]
     Dosage: ONE DOSE AT NIGHT TIME, HS 110
     Route: 055

REACTIONS (3)
  - Drug dose omission [Unknown]
  - Product quality issue [Unknown]
  - No adverse event [Unknown]
